FAERS Safety Report 22791297 (Version 2)
Quarter: 2025Q2

REPORT INFORMATION
  Report Type: Spontaneous
  Country: US (occurrence: US)
  Receive Date: 20230807
  Receipt Date: 20250507
  Transmission Date: 20250716
  Serious: Yes (Other)
  Sender: CSL BEHRING
  Company Number: US-BEH-2023161671

PATIENT
  Sex: Female

DRUGS (34)
  1. PRIVIGEN [Suspect]
     Active Substance: HUMAN IMMUNOGLOBULIN G
     Indication: Hypogammaglobulinaemia
     Dosage: 25 GRAM, QMT
     Route: 042
     Dates: start: 20220901
  2. PRIVIGEN [Suspect]
     Active Substance: HUMAN IMMUNOGLOBULIN G
     Dosage: 25 GRAM, QMT
     Route: 042
     Dates: start: 20220902
  3. ALBUTEROL SULFATE [Concomitant]
     Active Substance: ALBUTEROL SULFATE
  4. ALBUTEROL SULFATE [Concomitant]
     Active Substance: ALBUTEROL SULFATE
  5. ALLEGRA ALLERGY [Concomitant]
     Active Substance: FEXOFENADINE HYDROCHLORIDE
  6. AMLODIPINE [Concomitant]
     Active Substance: AMLODIPINE BESYLATE
  7. AZITHROMYCIN [Concomitant]
     Active Substance: AZITHROMYCIN
  8. BENICAR [Concomitant]
     Active Substance: OLMESARTAN MEDOXOMIL
  9. Betameth dipropionate [Concomitant]
  10. CALCIPOTRIENE [Concomitant]
     Active Substance: CALCIPOTRIENE
  11. CLOBETASOL [Concomitant]
     Active Substance: CLOBETASOL
  12. DOXYCYCLINE [Concomitant]
     Active Substance: DOXYCYCLINE
  13. GABAPENTIN [Concomitant]
     Active Substance: GABAPENTIN
  14. GABAPENTIN [Concomitant]
     Active Substance: GABAPENTIN
  15. HYDROCHLOROTHIAZIDE [Concomitant]
     Active Substance: HYDROCHLOROTHIAZIDE
  16. IBUPROFEN [Concomitant]
     Active Substance: IBUPROFEN
  17. MELOXICAM [Concomitant]
     Active Substance: MELOXICAM
  18. METHOCARBAMOL [Concomitant]
     Active Substance: METHOCARBAMOL
  19. METHYLPREDNISOLONE [Concomitant]
     Active Substance: METHYLPREDNISOLONE
  20. MUCINEX DM [Concomitant]
     Active Substance: DEXTROMETHORPHAN HYDROBROMIDE\GUAIFENESIN
  21. VITAMINS [Concomitant]
     Active Substance: VITAMINS
  22. Olmesab [Concomitant]
  23. POTASSIUM SULFATE [Concomitant]
     Active Substance: POTASSIUM SULFATE
  24. PREDNISONE [Concomitant]
     Active Substance: PREDNISONE
  25. PROBIOTICS NOS [Concomitant]
     Active Substance: PROBIOTICS NOS
  26. SODIUM CHLORIDE [Concomitant]
     Active Substance: SODIUM CHLORIDE
  27. SODIUM CHLORIDE [Concomitant]
     Active Substance: SODIUM CHLORIDE
  28. TRELEGY ELLIPTA [Concomitant]
     Active Substance: FLUTICASONE FUROATE\UMECLIDINIUM BROMIDE\VILANTEROL TRIFENATATE
  29. VENTOLIN HFA [Concomitant]
     Active Substance: ALBUTEROL SULFATE
  30. VITAMIN B12 [Concomitant]
     Active Substance: CYANOCOBALAMIN
  31. VITAMIN C [Concomitant]
     Active Substance: ASCORBIC ACID
  32. ZINC [Concomitant]
     Active Substance: ZINC
  33. ALBUTEROL [Concomitant]
     Active Substance: ALBUTEROL
  34. ALBUTEROL [Concomitant]
     Active Substance: ALBUTEROL

REACTIONS (2)
  - Drug ineffective [Unknown]
  - Blood pressure increased [Unknown]
